FAERS Safety Report 5822650-8 (Version None)
Quarter: 2008Q3

REPORT INFORMATION
  Report Type: 
  Country: None (occurrence: None)
  Receive Date: 20080725
  Receipt Date: 20080501
  Transmission Date: 20090109
  Serious: No
  Sender: FDA-Public Use
  Company Number: US-BAYER-200822455NA

PATIENT
  Age: 36 Year
  Sex: Female
  Weight: 57 kg

DRUGS (3)
  1. MIRENA [Suspect]
     Indication: CONTRACEPTION
     Route: 015
     Dates: start: 20071001, end: 20071001
  2. MIRENA [Suspect]
     Route: 015
     Dates: start: 20071101, end: 20071101
  3. PAXIL [Concomitant]
     Indication: ANXIETY
     Route: 065

REACTIONS (4)
  - ABDOMINAL PAIN [None]
  - COMPLICATION OF DEVICE INSERTION [None]
  - IUCD COMPLICATION [None]
  - PROCEDURAL PAIN [None]
